FAERS Safety Report 24249372 (Version 1)
Quarter: 2024Q3

REPORT INFORMATION
  Report Type: Spontaneous
  Country: US (occurrence: None)
  Receive Date: 20240823
  Receipt Date: 20240823
  Transmission Date: 20241017
  Serious: No
  Sender: Public
  Company Number: None

PATIENT
  Age: 62 Year
  Sex: Female
  Weight: 58.5 kg

DRUGS (13)
  1. REPATHA [Suspect]
     Active Substance: EVOLOCUMAB
     Indication: Blood cholesterol increased
     Dosage: OTHER QUANTITY : 1 INJECTION(S);?OTHER FREQUENCY : EVERY 2 WEEKS;?
     Route: 058
     Dates: start: 20240123, end: 20240514
  2. AMLODIPINE [Concomitant]
     Active Substance: AMLODIPINE BESYLATE
  3. ALPRAZOLAM [Concomitant]
     Active Substance: ALPRAZOLAM
  4. CETIRIZINE [Concomitant]
     Active Substance: CETIRIZINE HYDROCHLORIDE
  5. MINERALS\VITAMINS [Concomitant]
     Active Substance: MINERALS\VITAMINS
  6. BERBERINE [Concomitant]
     Active Substance: BERBERINE
  7. citrus bergamot [Concomitant]
  8. pumpkin seed oil [Concomitant]
  9. nail and skin [Concomitant]
  10. IRON [Concomitant]
     Active Substance: IRON
  11. FERROUS SULFATE [Concomitant]
     Active Substance: FERROUS SULFATE
  12. VITAMIN D3 [Concomitant]
     Active Substance: CHOLECALCIFEROL
  13. COENZYME Q10 [Concomitant]
     Active Substance: DIETARY SUPPLEMENT\UBIDECARENONE

REACTIONS (16)
  - Abdominal distension [None]
  - Flatulence [None]
  - Neck pain [None]
  - Headache [None]
  - Joint stiffness [None]
  - Myalgia [None]
  - Back pain [None]
  - Arthralgia [None]
  - Hypoaesthesia [None]
  - Paraesthesia [None]
  - Tongue biting [None]
  - Tongue disorder [None]
  - Skin exfoliation [None]
  - Joint swelling [None]
  - Joint noise [None]
  - Brain fog [None]

NARRATIVE: CASE EVENT DATE: 20240125
